FAERS Safety Report 12187292 (Version 1)
Quarter: 2016Q1

REPORT INFORMATION
  Report Type: Spontaneous
  Country: US (occurrence: None)
  Receive Date: 20160316
  Receipt Date: 20160316
  Transmission Date: 20160526
  Serious: No
  Sender: FDA-Public Use
  Company Number: None

PATIENT
  Age: 45 Year
  Sex: Female

DRUGS (1)
  1. MEKINIST [Suspect]
     Active Substance: TRAMETINIB DIMETHYL SULFOXIDE
     Route: 048

REACTIONS (5)
  - Rash [None]
  - Nausea [None]
  - Chills [None]
  - Tremor [None]
  - Vomiting [None]

NARRATIVE: CASE EVENT DATE: 20160315
